FAERS Safety Report 8424039-4 (Version None)
Quarter: 2012Q2

REPORT INFORMATION
  Report Type: 
  Country: None (occurrence: None)
  Receive Date: 20120608
  Receipt Date: 20110608
  Transmission Date: 20120825
  Serious: No
  Sender: FDA-Public Use
  Company Number: US-ASTRAZENECA-2011SE35422

PATIENT
  Age: 819 Month
  Sex: Female

DRUGS (3)
  1. ALBUTEROL [Suspect]
     Route: 065
  2. SINGULAIR [Suspect]
     Route: 065
  3. PULMICORT FLEXHALER [Suspect]
     Route: 055

REACTIONS (3)
  - MULTIPLE ALLERGIES [None]
  - OROPHARYNGEAL PAIN [None]
  - CANDIDIASIS [None]
